FAERS Safety Report 10074563 (Version 1)
Quarter: 2014Q2

REPORT INFORMATION
  Report Type: Spontaneous
  Country: US (occurrence: US)
  Receive Date: 20140411
  Receipt Date: 20140411
  Transmission Date: 20141212
  Serious: No
  Sender: FDA-Public Use
  Company Number: US-SA-2014SA016368

PATIENT
  Age: 48 Year
  Sex: Female
  Weight: 53.52 kg

DRUGS (2)
  1. ALLEGRA D [Suspect]
     Indication: NASAL CONGESTION
     Route: 048
  2. MELOXICAM [Suspect]
     Indication: EPICONDYLITIS
     Route: 065

REACTIONS (3)
  - Heart rate increased [Not Recovered/Not Resolved]
  - Dry mouth [Not Recovered/Not Resolved]
  - Extra dose administered [Unknown]
